FAERS Safety Report 17428235 (Version 1)
Quarter: 2020Q1

REPORT INFORMATION
  Report Type: Spontaneous
  Country: US (occurrence: US)
  Receive Date: 20200214
  Receipt Date: 20200214
  Transmission Date: 20200409
  Serious: Yes (Hospitalization)
  Sender: FDA-Public Use
  Company Number: None

PATIENT
  Age: 83 Year
  Sex: Female
  Weight: 79 kg

DRUGS (18)
  1. DIMETHICONE 5% CREAM [Concomitant]
  2. FLUTICASONE 50 MCG NASAL SPRAY [Concomitant]
  3. LISINOPRIL 5 MG [Concomitant]
     Active Substance: LISINOPRIL
  4. MELOXICAM. [Suspect]
     Active Substance: MELOXICAM
     Indication: PAIN
     Route: 048
  5. LIDOCAINE 4% CREAM [Concomitant]
     Active Substance: LIDOCAINE
  6. MILK OF MAG [Concomitant]
  7. METFORMIN [Concomitant]
     Active Substance: METFORMIN HYDROCHLORIDE
  8. MULTIVITAMIN [Concomitant]
     Active Substance: VITAMINS
  9. ATORVASTATIN 40 MG [Concomitant]
     Active Substance: ATORVASTATIN
  10. ASPIRIN. [Suspect]
     Active Substance: ASPIRIN
     Indication: CORONARY ARTERY DISEASE
     Route: 048
  11. BIOTIN 5000 MCG [Concomitant]
  12. MAGNESIUM 250 MG [Concomitant]
  13. ACETAMINOPHEN 650 MG [Concomitant]
     Active Substance: ACETAMINOPHEN
  14. DULOXETINE 30 MG [Concomitant]
     Active Substance: DULOXETINE
  15. LORATADINE 10 MG [Concomitant]
     Active Substance: LORATADINE
  16. OMEPRAZOLE 20 MG [Concomitant]
     Active Substance: OMEPRAZOLE
  17. CALCIUM W/VIT D 600/400 [Concomitant]
  18. FERROUS SULFATE 325 MG [Concomitant]

REACTIONS (1)
  - Haematochezia [None]

NARRATIVE: CASE EVENT DATE: 20200203
